FAERS Safety Report 5305106-0 (Version None)
Quarter: 2007Q2

REPORT INFORMATION
  Report Type: 
  Country: None (occurrence: None)
  Receive Date: 20070417
  Receipt Date: 20070405
  Transmission Date: 20071010
  Serious: Yes (Hospitalization, Other)
  Sender: FDA-Public Use
  Company Number: 2007BI002113

PATIENT
  Age: 64 Year
  Sex: Male
  Weight: 51.2565 kg

DRUGS (1)
  1. AVONEX [Suspect]
     Indication: MULTIPLE SCLEROSIS
     Dosage: 30 UG;QW;IM
     Route: 030

REACTIONS (9)
  - ASTHENIA [None]
  - CYSTITIS [None]
  - GAIT DISTURBANCE [None]
  - GASTROINTESTINAL DISORDER [None]
  - HEADACHE [None]
  - MALAISE [None]
  - PAIN IN EXTREMITY [None]
  - PROSTATE CANCER [None]
  - WEIGHT DECREASED [None]
